FAERS Safety Report 7708348-X (Version None)
Quarter: 2011Q3

REPORT INFORMATION
  Report Type: 
  Country: None (occurrence: None)
  Receive Date: 20110825
  Receipt Date: 20110811
  Transmission Date: 20111222
  Serious: Yes (Hospitalization)
  Sender: FDA-Public Use
  Company Number: FR-UCBSA-039119

PATIENT
  Sex: Female

DRUGS (7)
  1. OXAZEPAM [Concomitant]
     Dosage: FOR A LONG TIME 10 MG DAILY
     Route: 048
  2. KEPPRA [Suspect]
     Indication: GRAND MAL CONVULSION
     Route: 048
     Dates: start: 20110708, end: 20110712
  3. FOLIC ACID [Concomitant]
     Indication: DEFICIENCY ANAEMIA
     Dosage: 5 MG DAILY - FOR A LONG TIME
     Route: 048
  4. AMLODIPINE BESYLATE [Concomitant]
     Indication: HYPERTENSION
     Dosage: 10 MG DAILY FOR A LONG TIME
     Route: 048
  5. LASIX [Concomitant]
     Indication: HYPERTENSION
     Dosage: FOR A LONG TIME
     Route: 048
  6. ARANESP [Concomitant]
     Indication: DEFICIENCY ANAEMIA
     Route: 058
  7. FERROUS SULFATE TAB [Concomitant]
     Indication: DEFICIENCY ANAEMIA
     Dosage: 80 MG DAILY FOR A LONG TIME
     Route: 048

REACTIONS (2)
  - ENCEPHALOPATHY [None]
  - RENAL FAILURE [None]
